FAERS Safety Report 23099406 (Version 1)
Quarter: 2023Q4

REPORT INFORMATION
  Report Type: Spontaneous
  Country: CA (occurrence: CA)
  Receive Date: 20231024
  Receipt Date: 20231024
  Transmission Date: 20240110
  Serious: Yes (Hospitalization)
  Sender: FDA-Public Use
  Company Number: CA-AMGEN-CANSP2023186780

PATIENT
  Age: 26 Year
  Sex: Female
  Weight: 130 kg

DRUGS (3)
  1. ADALIMUMAB [Suspect]
     Active Substance: ADALIMUMAB\ISOPROPYL ALCOHOL
     Indication: Colitis ulcerative
     Dosage: 40 MILLIGRAM, QWK
     Route: 058
     Dates: start: 202210, end: 20230911
  2. INFLECTRA [Suspect]
     Active Substance: INFLIXIMAB-DYYB
     Indication: Colitis ulcerative
     Dosage: 650 MILLIGRAM,(5MG/KG) W0, W2, W6 THEN EVERY 8WEEKS
     Route: 042
  3. PANTOPRAZOLE [Concomitant]
     Active Substance: PANTOPRAZOLE
     Dosage: UNK
     Dates: start: 202309

REACTIONS (2)
  - Colitis ulcerative [Unknown]
  - Drug specific antibody present [Unknown]
